FAERS Safety Report 10713556 (Version 1)
Quarter: 2015Q1

REPORT INFORMATION
  Report Type: Spontaneous
  Country: TR (occurrence: TR)
  Receive Date: 20150115
  Receipt Date: 20150115
  Transmission Date: 20150721
  Serious: Yes (Other)
  Sender: FDA-Public Use
  Company Number: TR-MYLANLABS-2015M1000538

PATIENT

DRUGS (3)
  1. BACLOFEN. [Suspect]
     Active Substance: BACLOFEN
     Dosage: 325 MG, QD
     Route: 037
     Dates: start: 200707
  2. BACLOFEN. [Suspect]
     Active Substance: BACLOFEN
     Dosage: 300 MG, QD
     Route: 037
  3. BACLOFEN. [Suspect]
     Active Substance: BACLOFEN
     Indication: MUSCLE SPASTICITY
     Dosage: 150 MG, QD
     Route: 037
     Dates: start: 200304

REACTIONS (2)
  - Deep vein thrombosis [Recovered/Resolved]
  - Hypotonia [Recovered/Resolved]
